FAERS Safety Report 11614495 (Version 1)
Quarter: 2015Q4

REPORT INFORMATION
  Report Type: Spontaneous
  Country: US (occurrence: US)
  Receive Date: 20151009
  Receipt Date: 20151009
  Transmission Date: 20160304
  Serious: No
  Sender: FDA-Public Use
  Company Number: US-009507513-1509USA009195

PATIENT
  Age: 67 Year
  Sex: Male
  Weight: 86.17 kg

DRUGS (13)
  1. ZONTIVITY [Suspect]
     Active Substance: VORAPAXAR SULFATE
     Dosage: UNK
     Route: 048
     Dates: start: 2015
  2. ATORVASTATIN [Concomitant]
     Active Substance: ATORVASTATIN
     Indication: HYPERLIPIDAEMIA
     Dosage: 1 TABLET EVERY DAY
     Route: 048
     Dates: start: 20141030
  3. ASPIRIN. [Concomitant]
     Active Substance: ASPIRIN
     Dosage: 81 MG, QD
     Route: 048
  4. ZETIA [Concomitant]
     Active Substance: EZETIMIBE
     Dosage: 1 TABLET EVERY DAY AT SUPPER
     Route: 048
  5. NIACIN. [Concomitant]
     Active Substance: NIACIN
     Dosage: 2500 MG (5 TABLET) EVERY DAY
     Route: 048
  6. NITROGLYCERIN. [Concomitant]
     Active Substance: NITROGLYCERIN
     Indication: CHEST PAIN
     Dosage: TAKE 1 TABLET AT THE 1ST SIGN OF CHEST PAIN, REPEAT EVERY 1 EVERY 5MIN UP TO 3 TABS IN A 15MIN PERIO
     Route: 060
  7. CLONAZEPAM. [Concomitant]
     Active Substance: CLONAZEPAM
     Dosage: TAKE 1 - 2 TABS AT BEDTIME IF NEEDED FOR SLEEP
     Route: 048
  8. FLUDROCORTISONE [Concomitant]
     Active Substance: FLUDROCORTISONE
     Indication: ORTHOSTATIC HYPOTENSION
     Dosage: 1 TABLET 1- 2 TIMES EVERY DAY, PRN
     Route: 048
     Dates: start: 20150702
  9. NEXIUM [Concomitant]
     Active Substance: ESOMEPRAZOLE MAGNESIUM
     Dosage: 40 MG, QD
     Route: 048
  10. BYSTOLIC [Concomitant]
     Active Substance: NEBIVOLOL HYDROCHLORIDE
     Dosage: 0.5 TABLET 2 TIMES EVERY DAY
     Route: 048
  11. ZONTIVITY [Suspect]
     Active Substance: VORAPAXAR SULFATE
     Dosage: 2.08 MG, QD
     Route: 048
     Dates: start: 20150805, end: 201508
  12. RANEXA [Concomitant]
     Active Substance: RANOLAZINE
     Indication: CORONARY ARTERY DISEASE
     Dosage: 2 TABLET 2 TIMES EVERY DAY
     Route: 048
     Dates: start: 20140930
  13. CHOLECALCIFEROL [Concomitant]
     Active Substance: CHOLECALCIFEROL
     Dosage: 4000 MG (2 TABLET), BID
     Route: 048

REACTIONS (3)
  - Rash [Recovered/Resolved]
  - Dizziness [Recovered/Resolved]
  - Rash [Not Recovered/Not Resolved]

NARRATIVE: CASE EVENT DATE: 201508
